FAERS Safety Report 9338934 (Version 3)
Quarter: 2013Q3

REPORT INFORMATION
  Report Type: Spontaneous
  Country: JP (occurrence: JP)
  Receive Date: 20130610
  Receipt Date: 20130812
  Transmission Date: 20140515
  Serious: Yes (Hospitalization, Other)
  Sender: FDA-Public Use
  Company Number: JP-PFIZER INC-2013171129

PATIENT
  Age: 44 Year
  Sex: Female
  Weight: 64 kg

DRUGS (11)
  1. DECADRON [Concomitant]
     Dosage: UNK
     Dates: start: 20130410, end: 20130605
  2. PROEMEND [Concomitant]
     Dosage: UNK
     Dates: start: 20130410, end: 20130605
  3. CAMPTO [Suspect]
     Indication: RECTAL CANCER
     Dosage: 240 MG, 1X/DAY
     Route: 041
     Dates: start: 20130410, end: 20130410
  4. CAMPTO [Suspect]
     Dosage: 240 MG, 1X/DAY
     Route: 041
     Dates: start: 20130424, end: 20130424
  5. CAMPTO [Suspect]
     Dosage: 240 MG, 1X/DAY
     Route: 041
     Dates: start: 20130508, end: 20130508
  6. CAMPTO [Suspect]
     Dosage: 240 MG, 1X/DAY
     Route: 041
     Dates: start: 20130522, end: 20130522
  7. CAMPTO [Suspect]
     Dosage: 240 MG, 1X/DAY
     Route: 041
     Dates: start: 20130605, end: 20130605
  8. LEVOFOLINATE [Concomitant]
     Indication: RECTAL CANCER
     Dosage: 300 MG, 1X/DAY
     Route: 041
     Dates: start: 20130410, end: 20130605
  9. 5-FU [Concomitant]
     Dosage: UNK
     Dates: start: 20130410, end: 20130605
  10. AVASTIN [Concomitant]
     Indication: RECTAL CANCER
     Dosage: 300 MG, 1X/DAY
     Route: 041
     Dates: start: 20130410, end: 20130605
  11. GRANISETRON [Concomitant]
     Dosage: UNK
     Dates: start: 20130410, end: 20130605

REACTIONS (2)
  - Muscle spasms [Not Recovered/Not Resolved]
  - Dyskinesia [Recovering/Resolving]
